FAERS Safety Report 22658294 (Version 1)
Quarter: 2023Q2

REPORT INFORMATION
  Report Type: Spontaneous
  Country: US (occurrence: None)
  Receive Date: 20230629
  Receipt Date: 20230629
  Transmission Date: 20230721
  Serious: Yes (Death)
  Sender: FDA-Public Use
  Company Number: None

PATIENT
  Sex: Male

DRUGS (2)
  1. ABRAXANE [Suspect]
     Active Substance: PACLITAXEL
     Indication: Pancreatic carcinoma
     Dosage: FREQUENCY : AS DIRECTED;?
     Route: 042
     Dates: start: 202306
  2. GEMCITABINE [Suspect]
     Active Substance: GEMCITABINE

REACTIONS (1)
  - Neoplasm malignant [None]
